FAERS Safety Report 5781368-0 (Version None)
Quarter: 2008Q2

REPORT INFORMATION
  Report Type: 
  Country: None (occurrence: None)
  Receive Date: 20080619
  Receipt Date: 20080606
  Transmission Date: 20081010
  Serious: Yes (Other)
  Sender: FDA-Public Use
  Company Number: 1-16245342

PATIENT
  Age: 50 Year
  Sex: Female

DRUGS (6)
  1. PLEXION TS (SODIUM SULFACETAMIDE 10% AND SULFER 5 %) [Suspect]
     Indication: ROSACEA
     Dosage: DAILY, TOPICAL
  2. DOXYCYCLINE [Concomitant]
  3. OXYCODONE HCL [Concomitant]
  4. CLONAZEPAM [Concomitant]
  5. PROZAC [Concomitant]
  6. IRON INFUSIONS [Concomitant]

REACTIONS (1)
  - AUTOIMMUNE DISORDER [None]
